FAERS Safety Report 15463625 (Version 1)
Quarter: 2018Q4

REPORT INFORMATION
  Report Type: Spontaneous
  Country: CR (occurrence: CR)
  Receive Date: 20181004
  Receipt Date: 20181004
  Transmission Date: 20190204
  Serious: Yes (Hospitalization, Other)
  Sender: FDA-Public Use
  Company Number: CR-BAYER-2018-180092

PATIENT
  Sex: Female

DRUGS (2)
  1. MIRENA [Suspect]
     Active Substance: LEVONORGESTREL
     Indication: ENDOMETRIOSIS
     Dosage: 20 MCG/24HR, CONT
     Route: 015
     Dates: end: 2017
  2. MIRENA [Suspect]
     Active Substance: LEVONORGESTREL
     Indication: PELVIC PAIN

REACTIONS (8)
  - Depression suicidal [None]
  - Device use issue [None]
  - Hypothalamo-pituitary disorder [None]
  - Blood prolactin increased [None]
  - Anger [None]
  - Headache [Not Recovered/Not Resolved]
  - Off label use of device [None]
  - Suicidal behaviour [None]
